FAERS Safety Report 18550572 (Version 11)
Quarter: 2021Q3

REPORT INFORMATION
  Report Type: Report from Study
  Country: US (occurrence: US)
  Receive Date: 20201126
  Receipt Date: 20210716
  Transmission Date: 20211014
  Serious: No
  Sender: FDA-Public Use
  Company Number: NVSC2020US316325

PATIENT
  Sex: Female

DRUGS (1)
  1. BEOVU [Suspect]
     Active Substance: BROLUCIZUMAB-DBLL
     Indication: NEOVASCULAR AGE-RELATED MACULAR DEGENERATION
     Dosage: UNK (LEFT EYE)
     Route: 047
     Dates: start: 20201124

REACTIONS (7)
  - Hypoaesthesia eye [Recovered/Resolved]
  - Visual field defect [Unknown]
  - Product residue present [Unknown]
  - Eye swelling [Unknown]
  - Eyelid pain [Unknown]
  - Eye irritation [Recovered/Resolved]
  - Intra-ocular injection complication [Recovered/Resolved]
